FAERS Safety Report 9238299 (Version 1)
Quarter: 2013Q2

REPORT INFORMATION
  Report Type: Spontaneous
  Country: US (occurrence: None)
  Receive Date: 20130415
  Receipt Date: 20130415
  Transmission Date: 20140414
  Serious: Yes (Other)
  Sender: FDA-Public Use
  Company Number: USEN-962MRQ

PATIENT
  Sex: Female

DRUGS (1)
  1. 3M AVAGARD FOAMING INSTANT HAND ANTISEPTIC [Suspect]
     Route: 061
     Dates: start: 20130318

REACTIONS (6)
  - Erythema [None]
  - Pruritus [None]
  - Swelling [None]
  - Eye swelling [None]
  - Lip swelling [None]
  - Throat tightness [None]
